FAERS Safety Report 9257278 (Version 1)
Quarter: 2013Q2

REPORT INFORMATION
  Report Type: Spontaneous
  Country: US (occurrence: None)
  Receive Date: 20130423
  Receipt Date: 20130423
  Transmission Date: 20140414
  Serious: Yes (Hospitalization)
  Sender: FDA-Public Use
  Company Number: AUR-APL-2013-03236

PATIENT
  Age: 47 Year
  Sex: Male

DRUGS (6)
  1. QUETIAPINE [Suspect]
     Indication: ABNORMAL DREAMS
     Route: 048
  2. LORAZEPAM (LORAZEPAM) [Suspect]
     Indication: SLEEP DISORDER
     Route: 030
  3. LEVODOPA/CARBIDOPA [Concomitant]
  4. CLONAZEPAM [Concomitant]
  5. PRAMIPEXOLE [Concomitant]
  6. SELEGILINE [Concomitant]

REACTIONS (17)
  - Psychotic disorder [None]
  - Impulsive behaviour [None]
  - Pathological gambling [None]
  - Condition aggravated [None]
  - Taciturnity [None]
  - Deja vu [None]
  - Fear [None]
  - Logorrhoea [None]
  - Agitation [None]
  - Delusion of grandeur [None]
  - Delusion [None]
  - Hallucination, visual [None]
  - Drug ineffective [None]
  - Refusal of treatment by patient [None]
  - Cogwheel rigidity [None]
  - Post procedural complication [None]
  - Thalamus haemorrhage [None]
